FAERS Safety Report 23501041 (Version 2)
Quarter: 2024Q2

REPORT INFORMATION
  Report Type: Report from Study
  Country: US (occurrence: US)
  Receive Date: 20240208
  Receipt Date: 20240408
  Transmission Date: 20240716
  Serious: Yes (Other)
  Sender: FDA-Public Use
  Company Number: US-002147023-NVSC2024US024125

PATIENT
  Sex: Female

DRUGS (1)
  1. KESIMPTA [Suspect]
     Active Substance: OFATUMUMAB
     Indication: Multiple sclerosis
     Dosage: 20 MG, OTHER (3 LOADING DOSE INJECTIONS FOR 1ST MONTH)
     Route: 058

REACTIONS (7)
  - Blindness [Unknown]
  - Influenza like illness [Unknown]
  - Chills [Unknown]
  - Pain [Unknown]
  - Vomiting [Unknown]
  - Vertigo [Unknown]
  - Fatigue [Unknown]
